FAERS Safety Report 18309143 (Version 3)
Quarter: 2021Q1

REPORT INFORMATION
  Report Type: Report from Study
  Country: CR (occurrence: CR)
  Receive Date: 20200924
  Receipt Date: 20210122
  Transmission Date: 20210419
  Serious: Yes (Life-Threatening, Other)
  Sender: FDA-Public Use
  Company Number: NVSC2020CR260012

PATIENT
  Sex: Female

DRUGS (1)
  1. SCAPHO [Suspect]
     Active Substance: SECUKINUMAB
     Indication: ANKYLOSING SPONDYLITIS
     Dosage: 150 MG, QMO BENEATH THE SKIN, USUALLY VIA INJECTION
     Route: 058
     Dates: start: 20190115, end: 20190914

REACTIONS (3)
  - Pain [Recovered/Resolved]
  - Ankylosing spondylitis [Unknown]
  - Near death experience [Recovered/Resolved]
